FAERS Safety Report 25328314 (Version 1)
Quarter: 2025Q2

REPORT INFORMATION
  Report Type: Spontaneous
  Country: US (occurrence: US)
  Receive Date: 20250518
  Receipt Date: 20250518
  Transmission Date: 20250716
  Serious: No
  Sender: SANDOZ
  Company Number: US-SANDOZ-SDZ2025US031226

PATIENT
  Age: 70 Year
  Sex: Male

DRUGS (1)
  1. OMNITROPE [Suspect]
     Active Substance: SOMATROPIN
     Indication: Hypopituitarism
     Dosage: 0.6 MG, QD
     Route: 058
     Dates: start: 20250512

REACTIONS (3)
  - Weight increased [Unknown]
  - Fluid retention [Unknown]
  - Product use in unapproved indication [Unknown]

NARRATIVE: CASE EVENT DATE: 20250501
